FAERS Safety Report 24892844 (Version 2)
Quarter: 2025Q1

REPORT INFORMATION
  Report Type: Spontaneous
  Country: JP (occurrence: JP)
  Receive Date: 20250128
  Receipt Date: 20250205
  Transmission Date: 20250409
  Serious: Yes (Hospitalization)
  Sender: Unknown Manufacturer
  Company Number: JP-MTPC-MTPC2025-0001481

PATIENT
  Age: 81 Year
  Sex: Female

DRUGS (3)
  1. EDARAVONE [Suspect]
     Active Substance: EDARAVONE
     Route: 041
  2. EDARAVONE [Concomitant]
     Active Substance: EDARAVONE
     Route: 048
  3. EDARAVONE [Concomitant]
     Active Substance: EDARAVONE
     Route: 048

REACTIONS (1)
  - Dysphagia [Unknown]
